FAERS Safety Report 7524443-2 (Version None)
Quarter: 2011Q2

REPORT INFORMATION
  Report Type: 
  Country: None (occurrence: None)
  Receive Date: 20110601
  Receipt Date: 20110601
  Transmission Date: 20111010
  Serious: No
  Sender: FDA-Public Use
  Company Number: None

PATIENT
  Sex: Male
  Weight: 113.6 kg

DRUGS (1)
  1. TRAMADOL HCL [Suspect]
     Indication: ARTHRALGIA
     Dosage: 50MG A/R ORALLY
     Route: 048
     Dates: start: 20110221, end: 20110427

REACTIONS (4)
  - EYE DISORDER [None]
  - STOMATITIS [None]
  - NASAL ULCER [None]
  - PAIN [None]
